FAERS Safety Report 7553891-X (Version None)
Quarter: 2011Q2

REPORT INFORMATION
  Report Type: 
  Country: None (occurrence: None)
  Receive Date: 20110617
  Receipt Date: 20110607
  Transmission Date: 20111010
  Serious: Yes (Other)
  Sender: FDA-Public Use
  Company Number: FR-ELI_LILLY_AND_COMPANY-FR201105003757

PATIENT
  Age: 55 Year
  Sex: Male
  Weight: 70 kg

DRUGS (7)
  1. MORPHINE [Concomitant]
  2. OMACOR [Concomitant]
     Dosage: 1 DSG, QD
  3. RAMIPRIL [Concomitant]
     Dosage: 2.5 MG, QD
     Route: 065
  4. ASPIRIN [Concomitant]
     Indication: MYOCARDIAL INFARCTION
     Dosage: 75 MG, QD
     Route: 065
  5. EFFIENT [Suspect]
     Indication: MYOCARDIAL INFARCTION
     Dosage: 10 MG, UNK
     Route: 048
     Dates: start: 20110128, end: 20110401
  6. SECTRAL [Concomitant]
     Indication: MYOCARDIAL INFARCTION
     Dosage: 100 MG, QD
     Route: 065
  7. CRESTOR [Concomitant]
     Indication: MYOCARDIAL INFARCTION
     Dosage: 10 MG, QD
     Route: 065

REACTIONS (5)
  - ECZEMA WEEPING [None]
  - URTICARIA [None]
  - RASH GENERALISED [None]
  - PRURITUS GENERALISED [None]
  - ECCHYMOSIS [None]
